FAERS Safety Report 8671980 (Version 2)
Quarter: 2012Q4

REPORT INFORMATION
  Report Type: 
  Country: US (occurrence: US)
  Receive Date: 20120718
  Receipt Date: 20120929
  Transmission Date: 20130627
  Serious: No
  Sender: FDA-Public Use
  Company Number: US-009507513-1207USA002198

PATIENT
  Sex: Male

DRUGS (3)
  1. VICTRELIS [Suspect]
     Indication: HEPATITIS C
     Dosage: 800 mg, tid
     Route: 048
  2. PEGASYS [Suspect]
  3. RIBAPAK [Suspect]

REACTIONS (3)
  - Headache [Unknown]
  - Nausea [Unknown]
  - Therapy responder [Unknown]
